FAERS Safety Report 6045070-2 (Version None)
Quarter: 2009Q1

REPORT INFORMATION
  Report Type: 
  Country: None (occurrence: None)
  Receive Date: 20090121
  Receipt Date: 20081203
  Transmission Date: 20090719
  Serious: Yes (Other)
  Sender: FDA-Public Use
  Company Number: FR-PFIZER INC-2008153848

PATIENT

DRUGS (1)
  1. VORICONAZOLE [Suspect]
     Indication: CANDIDIASIS
     Dosage: UNK

REACTIONS (1)
  - BRONCHOPULMONARY ASPERGILLOSIS [None]
